FAERS Safety Report 4917809-8 (Version None)
Quarter: 2006Q1

REPORT INFORMATION
  Report Type: 
  Country: None (occurrence: None)
  Receive Date: 20060221
  Receipt Date: 20060206
  Transmission Date: 20060701
  Serious: Yes (Other)
  Sender: FDA-Public Use
  Company Number: FR-AVENTIS-200610542FR

PATIENT
  Sex: Male
  Weight: 2.49 kg

DRUGS (8)
  1. LANTUS [Suspect]
     Indication: DIABETES MELLITUS INSULIN-DEPENDENT
     Route: 064
     Dates: start: 20050411, end: 20050426
  2. NOVORAPID [Concomitant]
     Indication: DIABETES MELLITUS INSULIN-DEPENDENT
     Dosage: DOSE: 8 THEN 30
     Route: 064
     Dates: end: 20050426
  3. INSULATARD NPH HUMAN [Concomitant]
     Indication: DIABETES MELLITUS INSULIN-DEPENDENT
     Route: 064
     Dates: end: 20050411
  4. TARDYFERON [Concomitant]
     Route: 064
  5. GAVISCON [Concomitant]
     Indication: GASTROOESOPHAGEAL REFLUX DISEASE
     Route: 064
     Dates: end: 20051101
  6. AZANTAC [Concomitant]
     Indication: GASTROOESOPHAGEAL REFLUX DISEASE
     Route: 064
     Dates: end: 20051001
  7. CORTICOSTEROIDS [Concomitant]
     Route: 064
     Dates: start: 20051020, end: 20051021
  8. HUMALOG [Concomitant]
     Route: 064
     Dates: start: 20050426

REACTIONS (5)
  - APGAR SCORE LOW [None]
  - DRUG EXPOSURE DURING PREGNANCY [None]
  - PREMATURE BABY [None]
  - RESPIRATORY DISTRESS [None]
  - TALIPES [None]
